FAERS Safety Report 9213733 (Version 1)
Quarter: 2013Q2

REPORT INFORMATION
  Report Type: Spontaneous
  Country: US (occurrence: US)
  Receive Date: 20130405
  Receipt Date: 20130405
  Transmission Date: 20140414
  Serious: Yes (Hospitalization, Other)
  Sender: FDA-Public Use
  Company Number: US-RANBAXY-2013US-67001

PATIENT
  Age: 59 Year
  Sex: Male

DRUGS (14)
  1. ONDANSETRON [Suspect]
     Indication: HICCUPS
     Dosage: UNK
     Route: 065
  2. PROMETHAZINE [Suspect]
     Indication: HICCUPS
     Route: 065
  3. RANITIDINE [Suspect]
     Indication: HICCUPS
     Dosage: 150 MG, BID
     Route: 065
  4. PROTONIX [Suspect]
     Indication: HICCUPS
     Dosage: UNK
     Route: 065
  5. CHLORPROMAZINE [Suspect]
     Indication: HICCUPS
     Dosage: 25 MG, QID
     Route: 065
  6. TEGASEROD [Suspect]
     Indication: HICCUPS
     Dosage: 6 MG, BID
     Route: 048
  7. GLYBURIDE [Concomitant]
     Indication: PRODUCT USED FOR UNKNOWN INDICATION
     Route: 065
  8. LISINOPRIL [Concomitant]
     Indication: PRODUCT USED FOR UNKNOWN INDICATION
     Route: 065
  9. INSULIN [Concomitant]
     Indication: PRODUCT USED FOR UNKNOWN INDICATION
     Route: 065
  10. METOPROLOL [Concomitant]
     Indication: PRODUCT USED FOR UNKNOWN INDICATION
     Route: 065
  11. AMLODIPINE [Concomitant]
     Indication: PRODUCT USED FOR UNKNOWN INDICATION
     Route: 065
  12. ASPIRIN [Concomitant]
     Indication: PRODUCT USED FOR UNKNOWN INDICATION
     Route: 065
  13. METOCLOPRAMIDE [Concomitant]
     Indication: PRODUCT USED FOR UNKNOWN INDICATION
     Route: 042
  14. GABAPENTIN [Concomitant]
     Indication: PRODUCT USED FOR UNKNOWN INDICATION
     Route: 065

REACTIONS (5)
  - Haematemesis [Unknown]
  - Blood pressure increased [Unknown]
  - Anaemia [Unknown]
  - Nausea [Unknown]
  - Drug ineffective [Unknown]
